FAERS Safety Report 5567129-6 (Version None)
Quarter: 2007Q4

REPORT INFORMATION
  Report Type: 
  Country: None (occurrence: None)
  Receive Date: 20071219
  Receipt Date: 20071217
  Transmission Date: 20080405
  Serious: Yes (Death)
  Sender: FDA-Public Use
  Company Number: CN-BRISTOL-MYERS SQUIBB COMPANY-14007769

PATIENT
  Age: 58 Year
  Sex: Female

DRUGS (3)
  1. BARACLUDE [Suspect]
     Indication: HEPATITIS B VIRUS
     Dosage: 1 DOSAGE FORM = 1 TABLET.
  2. ADEFOVIR DIPIVOXIL KIT [Concomitant]
  3. LAMIVUDINE [Concomitant]

REACTIONS (5)
  - DIZZINESS [None]
  - FATIGUE [None]
  - HEADACHE [None]
  - HEPATIC FAILURE [None]
  - NAUSEA [None]
